FAERS Safety Report 12190574 (Version 3)
Quarter: 2016Q1

REPORT INFORMATION
  Report Type: Spontaneous
  Country: US (occurrence: US)
  Receive Date: 20160318
  Receipt Date: 20160331
  Transmission Date: 20160526
  Serious: Yes (Hospitalization, Other)
  Sender: FDA-Public Use
  Company Number: US-PURDUE-USA-2016-0129622

PATIENT
  Age: 59 Year
  Sex: Male

DRUGS (10)
  1. HYDROCODONE W/APAP                 /01554201/ [Concomitant]
     Active Substance: ACETAMINOPHEN\HYDROCODONE
     Indication: PRODUCT USED FOR UNKNOWN INDICATION
     Dosage: 1 10/325 MG TABLET, TID
     Route: 048
     Dates: start: 201602
  2. PHENERGAN [Concomitant]
     Active Substance: PROMETHAZINE HYDROCHLORIDE
     Indication: NAUSEA
     Dosage: 1 TABLET, PRN
     Dates: start: 2015
  3. OXYCONTIN [Suspect]
     Active Substance: OXYCODONE HYDROCHLORIDE
     Indication: ANALGESIC THERAPY
     Dosage: 20 MG, Q12H
     Route: 048
  4. OXYCONTIN [Suspect]
     Active Substance: OXYCODONE HYDROCHLORIDE
     Indication: CANCER PAIN
     Dosage: 40 MG, Q12H
     Route: 048
     Dates: start: 2015, end: 201602
  5. AMBIEN [Concomitant]
     Active Substance: ZOLPIDEM TARTRATE
     Indication: INSOMNIA
     Dosage: 1 TABLET, HS
     Route: 048
  6. HYDROCODONE W/APAP                 /01554201/ [Concomitant]
     Active Substance: ACETAMINOPHEN\HYDROCODONE
     Dosage: 1 5/325 MG TABLET, TID
     Route: 048
     Dates: start: 201602
  7. PANTOPRAZOLE [Concomitant]
     Active Substance: PANTOPRAZOLE SODIUM
     Indication: DYSPEPSIA
     Dosage: 1 TABLET, DAILY
     Route: 048
     Dates: start: 2015
  8. MEGACE [Concomitant]
     Active Substance: MEGESTROL ACETATE
     Indication: WEIGHT CONTROL
     Dosage: UNK
     Route: 048
  9. VALIUM [Concomitant]
     Active Substance: DIAZEPAM
     Indication: ANXIETY
     Dosage: 5 MG, PRN
     Route: 048
  10. OXYCONTIN [Suspect]
     Active Substance: OXYCODONE HYDROCHLORIDE
     Indication: BACK INJURY

REACTIONS (12)
  - Colon cancer stage IV [Not Recovered/Not Resolved]
  - Blood potassium decreased [Unknown]
  - Pain [Unknown]
  - Hepatic neoplasm [Unknown]
  - Memory impairment [Unknown]
  - Wrong technique in product usage process [Unknown]
  - Dyspnoea [Unknown]
  - Somnolence [Unknown]
  - Blood potassium increased [Recovered/Resolved]
  - Depression [Not Recovered/Not Resolved]
  - Abdominal pain [Unknown]
  - Renal disorder [Not Recovered/Not Resolved]

NARRATIVE: CASE EVENT DATE: 201506
